FAERS Safety Report 4530941-6 (Version None)
Quarter: 2004Q4

REPORT INFORMATION
  Report Type: 
  Country: None (occurrence: None)
  Receive Date: 20041217
  Receipt Date: 20041004
  Transmission Date: 20050328
  Serious: Yes (Hospitalization)
  Sender: FDA-Public Use
  Company Number: NZ-MERCK-0410NZL00029

PATIENT
  Age: 59 Year
  Sex: Female

DRUGS (13)
  1. TEMAZEPAM [Concomitant]
     Route: 048
     Dates: start: 20040611
  2. SIMVASTATIN [Concomitant]
     Route: 048
     Dates: start: 20040709
  3. ACETAMINOPHEN AND PROPOXYPHENE HYDROCHLORIDE [Concomitant]
     Route: 048
     Dates: start: 20040723
  4. ASPIRIN [Concomitant]
     Route: 048
  5. NAPROXEN [Concomitant]
     Route: 048
  6. IMIPRAMINE HYDROCHLORIDE [Concomitant]
     Route: 048
  7. VIOXX [Suspect]
     Indication: OSTEOARTHRITIS
     Route: 048
     Dates: start: 20010101, end: 20040201
  8. DIAZEPAM [Concomitant]
     Route: 065
  9. FOLIC ACID [Concomitant]
     Route: 048
     Dates: start: 20040514
  10. METOPROLOL [Concomitant]
     Route: 048
     Dates: start: 20040514
  11. OMEPRAZOLE [Concomitant]
     Route: 048
     Dates: start: 20040611
  12. QUETIAPINE FUMARATE [Concomitant]
     Route: 048
     Dates: start: 20040611
  13. QUETIAPINE FUMARATE [Concomitant]
     Route: 048

REACTIONS (2)
  - CEREBROVASCULAR ACCIDENT [None]
  - HEART RATE IRREGULAR [None]
